FAERS Safety Report 17158150 (Version 1)
Quarter: 2019Q4

REPORT INFORMATION
  Report Type: Spontaneous
  Country: DE (occurrence: DE)
  Receive Date: 20191216
  Receipt Date: 20191216
  Transmission Date: 20200122
  Serious: Yes (Other)
  Sender: FDA-Public Use
  Company Number: DE-TEVA-788828GER

PATIENT
  Sex: Female
  Weight: 78 kg

DRUGS (5)
  1. MTX [Suspect]
     Active Substance: METHOTREXATE SODIUM
     Indication: MIXED CONNECTIVE TISSUE DISEASE
     Dosage: 10 (MG/WEEK )
     Route: 058
     Dates: start: 20170328, end: 20170428
  2. AMITRIPTYLIN [Concomitant]
     Active Substance: AMITRIPTYLINE
     Indication: FIBROMYALGIA
     Dosage: 20 MILLIGRAM DAILY;
     Route: 048
     Dates: start: 20170328, end: 20170502
  3. VALETTE [Concomitant]
     Active Substance: DIENOGEST\ETHINYL ESTRADIOL
     Indication: ORAL CONTRACEPTION
     Dosage: 0.03 [MG/D ] / 2 [MG/D ]
     Route: 048
     Dates: start: 20170328, end: 20170428
  4. FOLS?URE ABZ [Concomitant]
     Indication: PROPHYLAXIS OF NEURAL TUBE DEFECT
     Dosage: 5 [MG/D ]
     Route: 048
     Dates: start: 20170328, end: 20170502
  5. PREDNISOLON [Concomitant]
     Active Substance: PREDNISOLONE
     Indication: RHEUMATOID ARTHRITIS
     Dosage: 5 MILLIGRAM DAILY;
     Route: 048
     Dates: start: 20170328, end: 20170428

REACTIONS (2)
  - Abortion spontaneous [Recovered/Resolved]
  - Maternal exposure during pregnancy [Unknown]
